FAERS Safety Report 7959459-5 (Version None)
Quarter: 2011Q4

REPORT INFORMATION
  Report Type: 
  Country: None (occurrence: None)
  Receive Date: 20111206
  Receipt Date: 20111205
  Transmission Date: 20120403
  Serious: No
  Sender: FDA-Public Use
  Company Number: US-PFIZER INC-2011296301

PATIENT

DRUGS (2)
  1. FENTANYL [Interacting]
     Dosage: UNK
  2. ZYVOX [Suspect]
     Dosage: UNK

REACTIONS (1)
  - DRUG INTERACTION [None]
